FAERS Safety Report 20696898 (Version 1)
Quarter: 2022Q2

REPORT INFORMATION
  Report Type: Spontaneous
  Country: US (occurrence: US)
  Receive Date: 20220411
  Receipt Date: 20220411
  Transmission Date: 20220720
  Serious: No
  Sender: FDA-Public Use
  Company Number: US-Adamas_Pharmaceuticals-USA-POI1235202100101

PATIENT
  Age: 75 Year
  Sex: Male

DRUGS (1)
  1. OSMOLEX ER [Suspect]
     Active Substance: AMANTADINE
     Indication: Parkinson^s disease
     Dates: start: 20210723, end: 202110

REACTIONS (12)
  - Tachypnoea [Unknown]
  - Hallucination [Unknown]
  - Orthostatic hypotension [Unknown]
  - Balance disorder [Unknown]
  - Dizziness [Unknown]
  - Insomnia [Unknown]
  - Muscle spasms [Unknown]
  - Asthenia [Unknown]
  - Fatigue [Unknown]
  - Dysphonia [Unknown]
  - Nasal dryness [Unknown]
  - Mental impairment [Unknown]

NARRATIVE: CASE EVENT DATE: 20211001
